FAERS Safety Report 9210614 (Version 2)
Quarter: 2013Q2

REPORT INFORMATION
  Report Type: Spontaneous
  Country: US (occurrence: US)
  Receive Date: 20130404
  Receipt Date: 20130506
  Transmission Date: 20140414
  Serious: No
  Sender: FDA-Public Use
  Company Number: US-PFIZER INC-2013106635

PATIENT
  Age: 55 Year
  Sex: Female

DRUGS (12)
  1. FLECTOR [Suspect]
     Indication: FIBROMYALGIA
     Dosage: UNK
     Dates: start: 201303
  2. AMITRIPTYLINE [Concomitant]
     Dosage: 50 MG, 1X/DAY
  3. SIMVASTATIN [Concomitant]
     Dosage: 40 MG, 1X/DAY
  4. HYDROCHLOROTHIAZIDE [Concomitant]
     Dosage: 25 MG, 1X/DAY
  5. METFORMIN [Concomitant]
     Dosage: 500 MG, 1X/DAY
  6. CITALOPRAM [Concomitant]
     Dosage: 20 MG, 1X/DAY
  7. LEVOTHYROXINE [Concomitant]
     Dosage: 150 UG, 1X/DAY
  8. LISINOPRIL [Concomitant]
     Dosage: 2.5 MG, 1X/DAY
  9. SKELAXIN [Concomitant]
     Dosage: 800 MG, 3X/DAY
  10. TRAMADOL [Concomitant]
     Dosage: 50 MG, 5X/DAY
  11. LYRICA [Concomitant]
     Dosage: 100 MG, 2X/DAY
  12. PERCOCET [Concomitant]
     Dosage: 7.5/500 MG, 5X/DAY

REACTIONS (1)
  - Drug ineffective [Unknown]
